FAERS Safety Report 10381368 (Version 1)
Quarter: 2014Q3

REPORT INFORMATION
  Report Type: Spontaneous
  Country: GB (occurrence: None)
  Receive Date: 20140811
  Receipt Date: 20140811
  Transmission Date: 20150326
  Serious: Yes (Other)
  Sender: FDA-Public Use
  Company Number: SYM-2014-23839

PATIENT
  Age: 69 Year
  Sex: Male

DRUGS (7)
  1. AMLODIPINE [Concomitant]
     Active Substance: AMLODIPINE BESYLATE
  2. GABAPENTIN (GABAPENTIN) [Concomitant]
     Active Substance: GABAPENTIN
  3. ZOPICLONE (ZOPICLONE) [Concomitant]
     Active Substance: ZOPICLONE
  4. PARACETAMOL (PARACETAMOL) [Concomitant]
     Active Substance: ACETAMINOPHEN
  5. METRONIDAZOLE. [Suspect]
     Active Substance: METRONIDAZOLE
  6. RAMIPRIL (RAMIPRIL) [Concomitant]
     Active Substance: RAMIPRIL
  7. OMEPRAZOLE (OMEPRAZOLE) [Concomitant]
     Active Substance: OMEPRAZOLE

REACTIONS (6)
  - Tongue discolouration [None]
  - Tongue coated [None]
  - Feeling abnormal [None]
  - Balance disorder [None]
  - Dry mouth [None]
  - Bradyphrenia [None]

NARRATIVE: CASE EVENT DATE: 20140712
